FAERS Safety Report 6187977-1 (Version None)
Quarter: 2009Q2

REPORT INFORMATION
  Report Type: 
  Country: None (occurrence: None)
  Receive Date: 20090511
  Receipt Date: 20090511
  Transmission Date: 20091009
  Serious: Yes (Other)
  Sender: FDA-Public Use
  Company Number: None

PATIENT
  Age: 42 Year
  Sex: Female

DRUGS (1)
  1. AZURETTE 0.15MG DESOG/0.02MG EE + 0.01MG EE WATSON [Suspect]
     Indication: CONTRACEPTION
     Dosage: 1 TABLET ONCE DAILY PO
     Route: 048
     Dates: start: 20090502, end: 20090506

REACTIONS (3)
  - DIARRHOEA [None]
  - MUSCLE SPASMS [None]
  - NAUSEA [None]
